FAERS Safety Report 16105619 (Version 1)
Quarter: 2019Q1

REPORT INFORMATION
  Report Type: Spontaneous
  Country: US (occurrence: US)
  Receive Date: 20190322
  Receipt Date: 20190322
  Transmission Date: 20190418
  Serious: No
  Sender: FDA-Public Use
  Company Number: US-BAYER-2019-056319

PATIENT
  Age: 88 Year
  Sex: Female
  Weight: 143 kg

DRUGS (1)
  1. MIRALAX [Suspect]
     Active Substance: POLYETHYLENE GLYCOL 3350
     Indication: ABDOMINAL DISCOMFORT
     Dosage: 1 DF
     Route: 048
     Dates: start: 20190317

REACTIONS (5)
  - Nausea [None]
  - Product use in unapproved indication [Unknown]
  - Faeces soft [Recovered/Resolved]
  - Off label use [Unknown]
  - Abdominal distension [None]

NARRATIVE: CASE EVENT DATE: 201903
